FAERS Safety Report 24712743 (Version 3)
Quarter: 2024Q4

REPORT INFORMATION
  Report Type: Report from Study
  Country: US (occurrence: US)
  Receive Date: 20241209
  Receipt Date: 20241226
  Transmission Date: 20250115
  Serious: Yes (Hospitalization, Other)
  Sender: ABBVIE
  Company Number: US-ABBVIE-6032436

PATIENT
  Age: 25 Year
  Sex: Male

DRUGS (3)
  1. RINVOQ [Suspect]
     Active Substance: UPADACITINIB
     Indication: Crohn^s disease
     Dosage: DISCONTINUED IN 2024?FORM STRENGTH: 45 MILLIGRAM
     Route: 048
     Dates: start: 20240705, end: 20241201
  2. RINVOQ [Suspect]
     Active Substance: UPADACITINIB
     Indication: Crohn^s disease
     Route: 048
     Dates: start: 20241218
  3. VITAMIN D [Concomitant]
     Active Substance: VITAMIN D NOS
     Indication: Vitamin supplementation
     Dosage: FORM STRENGTH: 50000 UNITS

REACTIONS (7)
  - Small intestinal stenosis [Unknown]
  - Blood glucose decreased [Recovered/Resolved]
  - Dehydration [Recovered/Resolved]
  - Ileus [Recovered/Resolved]
  - Defaecation disorder [Recovered/Resolved]
  - Intestinal obstruction [Recovered/Resolved]
  - Gastrointestinal inflammation [Recovered/Resolved]

NARRATIVE: CASE EVENT DATE: 20240101
